FAERS Safety Report 12419031 (Version 5)
Quarter: 2016Q3

REPORT INFORMATION
  Report Type: Report from Study
  Country: CO (occurrence: CO)
  Receive Date: 20160531
  Receipt Date: 20160829
  Transmission Date: 20161109
  Serious: Yes (Hospitalization)
  Sender: FDA-Public Use
  Company Number: PHHY2016CO072646

PATIENT
  Sex: Female
  Weight: 67 kg

DRUGS (3)
  1. ACETAMINOPHEN AND CODEINE [Concomitant]
     Active Substance: ACETAMINOPHEN\CODEINE PHOSPHATE
     Indication: HEADACHE
     Dosage: PRN
     Route: 048
  2. REVOLADE [Suspect]
     Active Substance: ELTROMBOPAG
     Indication: IMMUNE THROMBOCYTOPENIC PURPURA
     Dosage: 50 MG, QD
     Route: 048
     Dates: start: 20150915
  3. REVOLADE [Suspect]
     Active Substance: ELTROMBOPAG
     Dosage: 50 MG, QD (ONE AND HALF DAILY)
     Route: 048

REACTIONS (6)
  - Purpura [Recovering/Resolving]
  - Dysgeusia [Unknown]
  - Feeling of despair [Unknown]
  - Somnolence [Unknown]
  - Platelet count decreased [Unknown]
  - Haemorrhage [Unknown]
